FAERS Safety Report 6569067-9 (Version None)
Quarter: 2010Q1

REPORT INFORMATION
  Report Type: 
  Country: None (occurrence: None)
  Receive Date: 20100203
  Receipt Date: 20080110
  Transmission Date: 20100710
  Serious: Yes (Other)
  Sender: FDA-Public Use
  Company Number: US-PFIZER INC-2006092327

PATIENT
  Sex: Female
  Weight: 83.9 kg

DRUGS (10)
  1. LYRICA [Suspect]
     Indication: NEURALGIA
     Dates: start: 20060701
  2. GABAPENTIN [Suspect]
  3. ZOLOFT [Concomitant]
     Route: 065
  4. CELEBREX [Concomitant]
     Route: 065
  5. MS CONTIN [Concomitant]
     Route: 065
  6. ACTOS [Concomitant]
     Route: 065
  7. LASIX [Concomitant]
     Route: 065
  8. LISINOPRIL [Concomitant]
     Route: 065
  9. MULTI-VITAMINS [Concomitant]
     Route: 065
  10. MILK OF MAGNESIA TAB [Concomitant]
     Route: 065

REACTIONS (3)
  - AMNESIA [None]
  - CONFUSIONAL STATE [None]
  - DIZZINESS [None]
